FAERS Safety Report 15472895 (Version 1)
Quarter: 2018Q4

REPORT INFORMATION
  Report Type: Spontaneous
  Country: US (occurrence: US)
  Receive Date: 20181008
  Receipt Date: 20181008
  Transmission Date: 20190205
  Serious: No
  Sender: FDA-Public Use
  Company Number: US-PFIZER INC-2018397593

PATIENT
  Age: 55 Year
  Sex: Female

DRUGS (2)
  1. XELJANZ XR [Suspect]
     Active Substance: TOFACITINIB CITRATE
     Indication: RHEUMATOID ARTHRITIS
     Dosage: 11 MG, ALTERNATE DAY (ALTERNATING 5MG ONE DAY THEN 11 MG THE NEXT)
  2. XELJANZ [Suspect]
     Active Substance: TOFACITINIB CITRATE
     Indication: RHEUMATOID ARTHRITIS
     Dosage: 5 MG, ALTERNATE DAY (ALTERNATING 5MG ONE DAY THEN 11 MG THE NEXT)
     Route: 048
     Dates: start: 201806

REACTIONS (3)
  - Diarrhoea [Unknown]
  - Headache [Unknown]
  - Weight increased [Unknown]
